FAERS Safety Report 11747835 (Version 2)
Quarter: 2016Q4

REPORT INFORMATION
  Report Type: Spontaneous
  Country: US (occurrence: US)
  Receive Date: 20151117
  Receipt Date: 20161116
  Transmission Date: 20170206
  Serious: No
  Sender: FDA-Public Use
  Company Number: US-NOVOPROD-446290

PATIENT
  Age: 44 Year
  Sex: Female

DRUGS (1)
  1. NOVOLOG MIX 70/30 [Suspect]
     Active Substance: INSULIN ASPART
     Indication: TYPE 2 DIABETES MELLITUS
     Route: 058

REACTIONS (8)
  - Vitamin C decreased [Unknown]
  - Nausea [Not Recovered/Not Resolved]
  - Stress [Not Recovered/Not Resolved]
  - Vitamin D decreased [Unknown]
  - Headache [Not Recovered/Not Resolved]
  - Skin hyperpigmentation [Unknown]
  - Vision blurred [Not Recovered/Not Resolved]
  - Vomiting [Unknown]
